FAERS Safety Report 4728288-8 (Version None)
Quarter: 2005Q3

REPORT INFORMATION
  Report Type: 
  Country: None (occurrence: None)
  Receive Date: 20050727
  Receipt Date: 20050715
  Transmission Date: 20060218
  Serious: Yes (Hospitalization, Other)
  Sender: FDA-Public Use
  Company Number: HQWYE363010JUN05

PATIENT
  Age: 48 Year
  Sex: Female
  Weight: 70 kg

DRUGS (3)
  1. MYLOTARG [Suspect]
     Indication: ACUTE MYELOID LEUKAEMIA
     Dosage: 15.4 MG 1X PER 1 DAY; INTRAVENOUS
     Route: 042
     Dates: start: 20050428, end: 20050428
  2. MYLOTARG [Suspect]
     Dosage: 15.3 MG 1X PER 1 DAY; INTRAVENOUS
     Route: 042
     Dates: start: 20050512, end: 20050512
  3. MYLOTARG [Suspect]
     Dates: start: 20050530, end: 20050530

REACTIONS (5)
  - CHILLS [None]
  - FEBRILE NEUTROPENIA [None]
  - HAEMATOCRIT DECREASED [None]
  - HAEMOGLOBIN DECREASED [None]
  - PLATELET COUNT DECREASED [None]
